FAERS Safety Report 7358345-1 (Version None)
Quarter: 2011Q1

REPORT INFORMATION
  Report Type: 
  Country: None (occurrence: None)
  Receive Date: 20110317
  Receipt Date: 20110311
  Transmission Date: 20110831
  Serious: Yes (Death, Other)
  Sender: FDA-Public Use
  Company Number: PHHY2011CA15160

PATIENT
  Sex: Female

DRUGS (13)
  1. ATACAND [Concomitant]
     Dosage: 8 MG
  2. CYMBALTA [Concomitant]
     Dosage: 60 MG
     Route: 048
  3. SYNTHROID [Concomitant]
     Dosage: UNK
  4. ACETYLSALICYLIC ACID [Concomitant]
     Dosage: 80 MG
  5. LIPITOR [Concomitant]
     Dosage: 40 MG
     Route: 048
  6. DIAMICRON [Concomitant]
     Dosage: UNK
  7. MAGNESIUM [Concomitant]
     Dosage: 100 MG, TID
     Route: 048
  8. METFORMIN HCL [Concomitant]
     Dosage: 850 MG, BID
  9. CALCIUM WITH VITAMIN D [Concomitant]
     Dosage: UNK
  10. ACLASTA [Suspect]
     Indication: OSTEOPOROSIS
     Dosage: 5 MG/100 ML
     Dates: start: 20100310
  11. VITAMIN B-12 [Concomitant]
     Dosage: UNK
  12. LOPRESSOR [Concomitant]
     Dosage: 100 MG, BID
  13. PANTOID 40 [Concomitant]
     Dosage: UNK

REACTIONS (2)
  - DEATH [None]
  - PULMONARY OEDEMA [None]
